FAERS Safety Report 8622051-3 (Version None)
Quarter: 2012Q3

REPORT INFORMATION
  Report Type: 
  Country: None (occurrence: None)
  Receive Date: 20120823
  Receipt Date: 20120823
  Transmission Date: 20120928
  Serious: Yes (Life-Threatening, Hospitalization, Disabling, Other)
  Sender: FDA-Public Use
  Company Number: None

PATIENT
  Age: 29 Year
  Sex: Female
  Weight: 56.6996 kg

DRUGS (1)
  1. MIRENA [Suspect]
     Indication: CONTRACEPTION
     Dates: start: 20120705, end: 20120730

REACTIONS (14)
  - PYREXIA [None]
  - PHOTOPHOBIA [None]
  - NIGHT SWEATS [None]
  - CHEST PAIN [None]
  - HEART RATE ABNORMAL [None]
  - PANIC ATTACK [None]
  - VISION BLURRED [None]
  - ALOPECIA [None]
  - HYPOAESTHESIA [None]
  - PARAESTHESIA [None]
  - SYSTEMIC LUPUS ERYTHEMATOSUS [None]
  - ANXIETY [None]
  - DIZZINESS [None]
  - PERSONALITY CHANGE [None]
